FAERS Safety Report 7743524-1 (Version None)
Quarter: 2011Q3

REPORT INFORMATION
  Report Type: 
  Country: None (occurrence: None)
  Receive Date: 20110912
  Receipt Date: 20110901
  Transmission Date: 20111222
  Serious: Yes (Hospitalization)
  Sender: FDA-Public Use
  Company Number: NL-JNJFOC-20110902053

PATIENT
  Sex: Female

DRUGS (3)
  1. CELECOXIB [Concomitant]
  2. SIMPONI [Suspect]
     Indication: ANKYLOSING SPONDYLITIS
     Route: 058
     Dates: start: 20100629
  3. CLOMIPRAMINE HCL [Concomitant]

REACTIONS (2)
  - CONTUSION [None]
  - PRURITUS [None]
